FAERS Safety Report 22981969 (Version 2)
Quarter: 2023Q4

REPORT INFORMATION
  Report Type: Report from Study
  Country: US (occurrence: US)
  Receive Date: 20230926
  Receipt Date: 20231122
  Transmission Date: 20240110
  Serious: Yes (Other)
  Sender: FDA-Public Use
  Company Number: US-ABBVIE-5420011

PATIENT
  Age: 55 Year
  Sex: Male
  Weight: 133 kg

DRUGS (1)
  1. HUMIRA [Suspect]
     Active Substance: ADALIMUMAB
     Indication: Ankylosing spondylitis
     Route: 058
     Dates: start: 20190101

REACTIONS (4)
  - Precancerous condition [Recovering/Resolving]
  - Dysplastic naevus [Unknown]
  - Malignant melanoma in situ [Unknown]
  - Scar [Unknown]

NARRATIVE: CASE EVENT DATE: 20210805
